FAERS Safety Report 7444676-3 (Version None)
Quarter: 2011Q2

REPORT INFORMATION
  Report Type: 
  Country: None (occurrence: None)
  Receive Date: 20110427
  Receipt Date: 20110427
  Transmission Date: 20111010
  Serious: Yes (Hospitalization)
  Sender: FDA-Public Use
  Company Number: None

PATIENT
  Sex: Female
  Weight: 54.4316 kg

DRUGS (2)
  1. TYSABRI [Suspect]
     Indication: RELAPSING-REMITTING MULTIPLE SCLEROSIS
     Dosage: 300 ML/15 MG EVERY 4 WEEKS IV DRIP
     Route: 041
     Dates: start: 20110314, end: 20110414
  2. SODIUM CHLORIDE [Concomitant]

REACTIONS (5)
  - HEADACHE [None]
  - MUSCULAR WEAKNESS [None]
  - ASTHENIA [None]
  - PARANOIA [None]
  - MUSCLE SPASMS [None]
